FAERS Safety Report 9300154 (Version 1)
Quarter: 2013Q2

REPORT INFORMATION
  Report Type: Spontaneous
  Country: US (occurrence: US)
  Receive Date: 20130521
  Receipt Date: 20130521
  Transmission Date: 20140414
  Serious: Yes (Other)
  Sender: FDA-Public Use
  Company Number: US-JNJFOC-20130412266

PATIENT
  Age: 13 Year
  Sex: Male
  Weight: 31.21 kg

DRUGS (11)
  1. REMICADE [Suspect]
     Indication: CROHN^S DISEASE
     Dosage: 310 MG
     Route: 042
     Dates: start: 20130328
  2. REMICADE [Suspect]
     Indication: CROHN^S DISEASE
     Dosage: 310 MG
     Route: 042
     Dates: start: 20130301
  3. REMICADE [Suspect]
     Indication: CROHN^S DISEASE
     Dosage: 310 MG
     Route: 042
     Dates: start: 20121018
  4. REMICADE [Suspect]
     Indication: CROHN^S DISEASE
     Dosage: 310 MG
     Route: 042
     Dates: start: 20120913
  5. OMEPRAZOLE [Concomitant]
     Route: 048
  6. ONDANSETRON [Concomitant]
     Indication: NAUSEA
     Route: 048
  7. FERROUS SULFATE [Concomitant]
     Route: 065
  8. BENADRYL [Concomitant]
     Indication: PREMEDICATION
     Route: 048
     Dates: start: 20130301
  9. TYLENOL [Concomitant]
     Indication: PREMEDICATION
     Route: 048
     Dates: start: 20130301
  10. SOLU MEDROL [Concomitant]
     Indication: PREMEDICATION
     Route: 042
     Dates: start: 20130301
  11. PREDNISONE [Concomitant]
     Route: 065

REACTIONS (9)
  - Hypersensitivity [Unknown]
  - Abdominal pain [Unknown]
  - Infusion related reaction [Recovered/Resolved]
  - Asthenia [Unknown]
  - Feeling hot [Recovered/Resolved]
  - Back pain [Recovered/Resolved]
  - Flushing [Recovered/Resolved]
  - Chest pain [Recovered/Resolved]
  - Vomiting [Unknown]
